FAERS Safety Report 9701981 (Version 2)
Quarter: 2013Q4

REPORT INFORMATION
  Report Type: Spontaneous
  Country: US (occurrence: US)
  Receive Date: 20131121
  Receipt Date: 20131218
  Transmission Date: 20140711
  Serious: No
  Sender: FDA-Public Use
  Company Number: US-009507513-1311USA007448

PATIENT
  Sex: Female
  Weight: 71.66 kg

DRUGS (6)
  1. GYNE LOTRIMIN 7 DAY CREAM [Suspect]
     Indication: VAGINAL INFECTION
     Dosage: UNK, UNKNOWN
     Route: 067
     Dates: start: 20131025, end: 20131030
  2. SYNTHROID [Concomitant]
     Indication: HYPOTHYROIDISM
     Dosage: 75 MICROGRAM, UNKNOWN
     Route: 048
  3. CARVEDILOL [Concomitant]
     Indication: PRODUCT USED FOR UNKNOWN INDICATION
     Dosage: 125 ML, UNKNOWN
     Route: 048
  4. PREVACID [Concomitant]
     Indication: DYSPEPSIA
     Dosage: 30 ML, UNKNOWN
     Route: 048
  5. ZOCOR [Concomitant]
     Indication: BLOOD CHOLESTEROL INCREASED
     Dosage: 20 MG, UNKNOWN
     Route: 048
  6. EFFEXOR [Concomitant]
     Indication: DEPRESSION
     Dosage: 37.5 MG, UNKNOWN
     Route: 048

REACTIONS (1)
  - Arthralgia [Recovering/Resolving]
